FAERS Safety Report 7253781-6 (Version None)
Quarter: 2011Q1

REPORT INFORMATION
  Report Type: 
  Country: None (occurrence: None)
  Receive Date: 20110129
  Receipt Date: 20100201
  Transmission Date: 20110831
  Serious: No
  Sender: FDA-Public Use
  Company Number: US-ABBOTT-10P-163-0623426-00

PATIENT
  Sex: Female
  Weight: 42.222 kg

DRUGS (5)
  1. VITAMIN B-12 [Concomitant]
     Indication: PRODUCT USED FOR UNKNOWN INDICATION
  2. HUMIRA [Suspect]
     Indication: CROHN'S DISEASE
     Route: 058
     Dates: start: 20050101, end: 20060101
  3. HUMIRA [Suspect]
     Indication: CROHN'S DISEASE
     Dates: start: 20060101, end: 20080101
  4. ENTOCORT EC [Concomitant]
     Indication: PRODUCT USED FOR UNKNOWN INDICATION
  5. POTASSIUM [Concomitant]
     Indication: PRODUCT USED FOR UNKNOWN INDICATION

REACTIONS (6)
  - SINUSITIS [None]
  - WEIGHT DECREASED [None]
  - BLOOD POTASSIUM DECREASED [None]
  - CROHN'S DISEASE [None]
  - ABDOMINAL PAIN [None]
  - DIARRHOEA [None]
